FAERS Safety Report 7351301-9 (Version None)
Quarter: 2011Q1

REPORT INFORMATION
  Report Type: 
  Country: None (occurrence: None)
  Receive Date: 20110304
  Receipt Date: 20110216
  Transmission Date: 20110831
  Serious: Yes (Death)
  Sender: FDA-Public Use
  Company Number: 2011020034

PATIENT
  Sex: Male

DRUGS (5)
  1. LUNESTA [Suspect]
  2. EMBEDA [Suspect]
  3. ONSOLIS [Suspect]
     Indication: CANCER PAIN
     Dosage: 200 , 400 MCG, 3 TIMES DAILY, AS NEEDED), BU
     Dates: start: 20101201
  4. ONSOLIS [Suspect]
     Indication: CANCER PAIN
     Dosage: 200 , 400 MCG, 3 TIMES DAILY, AS NEEDED), BU
     Dates: start: 20101101, end: 20101130
  5. ONSOLIS [Suspect]

REACTIONS (1)
  - DEATH [None]
